FAERS Safety Report 7126240-9 (Version None)
Quarter: 2010Q4

REPORT INFORMATION
  Report Type: 
  Country: None (occurrence: None)
  Receive Date: 20101129
  Receipt Date: 20101117
  Transmission Date: 20110411
  Serious: No
  Sender: FDA-Public Use
  Company Number: US-PFIZER INC-2010151229

PATIENT
  Sex: Female
  Weight: 86.2 kg

DRUGS (4)
  1. LYRICA [Suspect]
     Indication: GRAFT COMPLICATION
     Dosage: 50 MG, 3X/DAY
     Route: 048
     Dates: start: 20100201, end: 20101101
  2. OXYCODONE [Concomitant]
     Indication: BACK DISORDER
     Dosage: 30 MG, 3X/DAY
  3. TRAMADOL HYDROCHLORIDE AND ACETAMINOPHEN [Concomitant]
     Indication: BACK DISORDER
     Dosage: 37.5/325 MG, 2X/DAY
  4. CELEBREX [Concomitant]
     Indication: BACK DISORDER
     Dosage: 200 MG, DAILY

REACTIONS (2)
  - ARTHRALGIA [None]
  - CONTUSION [None]
